FAERS Safety Report 8153931-3 (Version None)
Quarter: 2012Q1

REPORT INFORMATION
  Report Type: 
  Country: None (occurrence: None)
  Receive Date: 20120221
  Receipt Date: 20120221
  Transmission Date: 20120608
  Serious: Yes (Life-Threatening, Hospitalization, Disabling, Other)
  Sender: FDA-Public Use
  Company Number: None

PATIENT
  Age: 4 Year
  Sex: Female
  Weight: 16 kg

DRUGS (5)
  1. VANCOMYCIN [Concomitant]
  2. CEFTRIAXONE [Concomitant]
  3. AZITHROMYCIN [Concomitant]
  4. ZOSYN [Concomitant]
  5. KINERET [Suspect]
     Indication: JUVENILE ARTHRITIS
     Dosage: 1.5 MG/KG
     Route: 041
     Dates: start: 20120123, end: 20120129

REACTIONS (5)
  - DRUG HYPERSENSITIVITY [None]
  - RESPIRATORY TRACT OEDEMA [None]
  - FACE OEDEMA [None]
  - SEPSIS [None]
  - RASH [None]
